FAERS Safety Report 5822938-0 (Version None)
Quarter: 2008Q3

REPORT INFORMATION
  Report Type: 
  Country: None (occurrence: None)
  Receive Date: 20080724
  Receipt Date: 20080724
  Transmission Date: 20090109
  Serious: No
  Sender: FDA-Public Use
  Company Number: None

PATIENT
  Age: 74 Year
  Sex: Female
  Weight: 57.1532 kg

DRUGS (1)
  1. STALEVO 100 [Suspect]
     Indication: PARKINSON'S DISEASE
     Dosage: ONE TABLET TWICE A DAY
     Dates: start: 20080617, end: 20080710

REACTIONS (4)
  - DIARRHOEA [None]
  - DIZZINESS [None]
  - MOVEMENT DISORDER [None]
  - NAUSEA [None]
